FAERS Safety Report 14066235 (Version 1)
Quarter: 2017Q4

REPORT INFORMATION
  Report Type: Spontaneous
  Country: NL (occurrence: NL)
  Receive Date: 20171010
  Receipt Date: 20171010
  Transmission Date: 20180321
  Serious: Yes (Other)
  Sender: FDA-Public Use
  Company Number: NL-AUROBINDO-AUR-APL-2012-02803

PATIENT
  Age: 71 Year
  Sex: Female

DRUGS (3)
  1. NAPROXEN. [Suspect]
     Active Substance: NAPROXEN
     Indication: BONE PAIN
  2. NAPROXEN. [Suspect]
     Active Substance: NAPROXEN
     Indication: MYOPATHY
     Dosage: 500 MG,3 TIMES A DAY,
     Route: 065
  3. PREDNISONE. [Suspect]
     Active Substance: PREDNISONE
     Indication: ASTHMA
     Dosage: 15MG DAILY
     Route: 065

REACTIONS (2)
  - Cushing^s syndrome [Unknown]
  - Hypoaldosteronism [Recovered/Resolved]
